FAERS Safety Report 12456789 (Version 1)
Quarter: 2016Q2

REPORT INFORMATION
  Report Type: Report from Study
  Country: US (occurrence: US)
  Receive Date: 20160610
  Receipt Date: 20160610
  Transmission Date: 20160815
  Serious: Yes (Death, Hospitalization)
  Sender: FDA-Public Use
  Company Number: US-009507513-1606USA002470

PATIENT
  Age: 13 Year
  Sex: Female
  Weight: 38.5 kg

DRUGS (12)
  1. GRANULOCYTE-MACROPHAGE COLONY STIMULATING FACTOR (UNSPECIFIED) [Suspect]
     Active Substance: GRANULOCYTE-MACROPHAGE COLONY-STIMULATING FACTOR
     Indication: NEUROBLASTOMA
     Dosage: 250 MICROGRAM PER SQ METER, (FREQUENCY: TWO HOURS ON DAYS 6-12)
     Route: 058
  2. ZOFRAN [Concomitant]
     Active Substance: ONDANSETRON HYDROCHLORIDE
  3. NEURONTIN [Concomitant]
     Active Substance: GABAPENTIN
  4. SCOPOLAMINE [Concomitant]
     Active Substance: SCOPOLAMINE
  5. FLAGYL [Concomitant]
     Active Substance: METRONIDAZOLE\METRONIDAZOLE HYDROCHLORIDE
  6. POTASSIUM PHOSPHATE, DIBASIC [Concomitant]
     Active Substance: POTASSIUM PHOSPHATE, DIBASIC
  7. BICITRA [Concomitant]
     Active Substance: CITRIC ACID, 1-STEARYL ESTER\SODIUM CITRATE
     Route: 048
  8. TEMOZOLOMIDE. [Suspect]
     Active Substance: TEMOZOLOMIDE
     Indication: NEUROBLASTOMA
     Dosage: 100 MG/M2, (FREQUENCY: DAY 1-5)
     Route: 048
  9. DIFLUCAN [Concomitant]
     Active Substance: FLUCONAZOLE
  10. MEGACE [Concomitant]
     Active Substance: MEGESTROL ACETATE
  11. TYLENOL WITH CODEINE [Concomitant]
     Active Substance: ACETAMINOPHEN\CODEINE PHOSPHATE
  12. IRINOTECAN HYDROCHLORIDE. [Suspect]
     Active Substance: IRINOTECAN HYDROCHLORIDE
     Indication: NEUROBLASTOMA
     Dosage: 50 MG/M2, (FREQUENCY: OVER 90 MINUTES ON DAYS 1-5)
     Route: 041

REACTIONS (10)
  - Lethargy [Unknown]
  - Death [Fatal]
  - Dyspnoea [Unknown]
  - Hypotension [Unknown]
  - Syncope [Unknown]
  - Vision blurred [Unknown]
  - Headache [Unknown]
  - Metabolic disorder [Fatal]
  - Respiratory arrest [Fatal]
  - Cardiac arrest [Fatal]

NARRATIVE: CASE EVENT DATE: 201603
